FAERS Safety Report 9241237 (Version 2)
Quarter: 2013Q2

REPORT INFORMATION
  Report Type: Report from Study
  Country: NL (occurrence: NL)
  Receive Date: 20130419
  Receipt Date: 20130430
  Transmission Date: 20140414
  Serious: Yes (Hospitalization)
  Sender: FDA-Public Use
  Company Number: NL-GENZYME-CLOF-1002593

PATIENT
  Age: 34 Year
  Sex: Male
  Weight: 92 kg

DRUGS (8)
  1. EVOLTRA [Suspect]
     Indication: ACUTE LYMPHOCYTIC LEUKAEMIA
     Dosage: 64.52 UNK, UNK
     Route: 042
     Dates: start: 20130315
  2. PEGASPARGASE [Suspect]
     Indication: ACUTE LYMPHOCYTIC LEUKAEMIA
     Dosage: 2150.8 UNK, UNK
     Route: 042
     Dates: start: 20130322
  3. PREDNISONE [Suspect]
     Indication: ACUTE LYMPHOCYTIC LEUKAEMIA
     Dosage: 45 MG, BID
     Route: 048
     Dates: start: 20130322
  4. PREDNISONE [Suspect]
     Dosage: 25 MG, UNK
     Route: 037
     Dates: start: 20130403
  5. VINCRISTINE [Suspect]
     Indication: ACUTE LYMPHOCYTIC LEUKAEMIA
     Dosage: 2 MG, UNK
     Route: 042
     Dates: start: 20130322
  6. DAUNORUBICIN [Suspect]
     Indication: ACUTE LYMPHOCYTIC LEUKAEMIA
     Dosage: 86.03 MG, UNK
     Route: 042
     Dates: start: 20130329
  7. METHOTREXATE [Suspect]
     Indication: ACUTE LYMPHOCYTIC LEUKAEMIA
     Dosage: 15 MG, UNK
     Route: 037
     Dates: start: 20130403
  8. G-CSF [Suspect]
     Indication: ACUTE LYMPHOCYTIC LEUKAEMIA
     Dosage: 300 MCG, UNK
     Route: 030
     Dates: start: 20130323

REACTIONS (1)
  - Hypercholesterolaemia [Not Recovered/Not Resolved]
